FAERS Safety Report 10662928 (Version 1)
Quarter: 2014Q4

REPORT INFORMATION
  Report Type: Spontaneous
  Country: US (occurrence: None)
  Receive Date: 20141208
  Receipt Date: 20141208
  Transmission Date: 20150529
  Serious: No
  Sender: FDA-Public Use
  Company Number: 2014TUS007161

PATIENT
  Age: 16 Year
  Sex: Female

DRUGS (1)
  1. BRINTELLIX [Suspect]
     Active Substance: VORTIOXETINE HYDROBROMIDE
     Indication: MAJOR DEPRESSION
     Dosage: SAMPLE
     Route: 048
     Dates: start: 2014

REACTIONS (1)
  - Dyskinesia [None]

NARRATIVE: CASE EVENT DATE: 2014
